FAERS Safety Report 8411283-5 (Version None)
Quarter: 2012Q2

REPORT INFORMATION
  Report Type: 
  Country: None (occurrence: None)
  Receive Date: 20120605
  Receipt Date: 20120530
  Transmission Date: 20120825
  Serious: Yes (Hospitalization)
  Sender: FDA-Public Use
  Company Number: IT-PFIZER INC-2012131193

PATIENT
  Age: 50 Year
  Sex: Female

DRUGS (1)
  1. XANAX [Suspect]
     Dosage: 30 ML, TOTAL DOSE
     Route: 048
     Dates: start: 20120515, end: 20120515

REACTIONS (2)
  - SOPOR [None]
  - INTENTIONAL OVERDOSE [None]
